FAERS Safety Report 21955405 (Version 2)
Quarter: 2023Q1

REPORT INFORMATION
  Report Type: Spontaneous
  Country: GB (occurrence: GB)
  Receive Date: 20230206
  Receipt Date: 20230208
  Transmission Date: 20230417
  Serious: Yes (Hospitalization)
  Sender: FDA-Public Use
  Company Number: GB-ABBVIE-4295484

PATIENT
  Sex: Male

DRUGS (1)
  1. SKYRIZI [Suspect]
     Active Substance: RISANKIZUMAB-RZAA
     Indication: Product used for unknown indication
     Route: 058

REACTIONS (9)
  - Loss of consciousness [Unknown]
  - Hypertension [Unknown]
  - Nausea [Unknown]
  - Lower respiratory tract infection [Unknown]
  - Malaise [Unknown]
  - Product prescribing issue [Unknown]
  - Blood pressure decreased [Unknown]
  - Incorrect route of product administration [Unknown]
  - Cough [Not Recovered/Not Resolved]

NARRATIVE: CASE EVENT DATE: 20230101
